FAERS Safety Report 9716717 (Version 1)
Quarter: 2013Q4

REPORT INFORMATION
  Report Type: Report from Study
  Country: US (occurrence: US)
  Receive Date: 20131127
  Receipt Date: 20131127
  Transmission Date: 20140711
  Serious: Yes (Hospitalization)
  Sender: FDA-Public Use
  Company Number: US-UCBSA-104234

PATIENT
  Age: 42 Year
  Sex: Male

DRUGS (3)
  1. VIMPAT [Suspect]
     Indication: CONVULSION
     Dates: start: 20131007, end: 201310
  2. DEPAKOTE [Suspect]
  3. DEPAKOTE [Suspect]

REACTIONS (1)
  - Grand mal convulsion [Recovered/Resolved]
